FAERS Safety Report 11119047 (Version 1)
Quarter: 2015Q2

REPORT INFORMATION
  Report Type: Spontaneous
  Country: US (occurrence: US)
  Receive Date: 20150518
  Receipt Date: 20150518
  Transmission Date: 20150821
  Serious: Yes (Hospitalization)
  Sender: FDA-Public Use
  Company Number: US-SA-2015SA064965

PATIENT
  Age: 72 Year
  Sex: Female

DRUGS (18)
  1. VITAMIN D [Concomitant]
     Active Substance: CHOLECALCIFEROL
     Dosage: 1000 UNITS
  2. ESTRACE [Concomitant]
     Active Substance: ESTRADIOL
  3. DITROPAN [Concomitant]
     Active Substance: OXYBUTYNIN CHLORIDE
  4. AMPYRA [Suspect]
     Active Substance: DALFAMPRIDINE
     Indication: MULTIPLE SCLEROSIS
     Dosage: AMPYRA TABLET 10 MG
     Route: 048
  5. TECFIDERA [Suspect]
     Active Substance: DIMETHYL FUMARATE
     Indication: MULTIPLE SCLEROSIS
     Route: 065
  6. AMPYRA [Suspect]
     Active Substance: DALFAMPRIDINE
     Indication: GAIT DISTURBANCE
     Dosage: AMPYRA TABLET 10 MG
     Route: 048
  7. LEVOTHYROXINE SODIUM. [Concomitant]
     Active Substance: LEVOTHYROXINE SODIUM
  8. LISINOPRIL. [Concomitant]
     Active Substance: LISINOPRIL
  9. MAGNESIUM [Concomitant]
     Active Substance: MAGNESIUM
     Dosage: 100 MG
  10. AUBAGIO [Suspect]
     Active Substance: TERIFLUNOMIDE
     Indication: MULTIPLE SCLEROSIS
     Route: 065
  11. NASACORT [Concomitant]
     Active Substance: TRIAMCINOLONE ACETONIDE
  12. DIGITEK [Concomitant]
     Active Substance: DIGOXIN
  13. ALBUTEROL. [Concomitant]
     Active Substance: ALBUTEROL
  14. COPAXONE [Suspect]
     Active Substance: GLATIRAMER ACETATE
     Indication: MULTIPLE SCLEROSIS
     Route: 065
  15. IMODIUM [Concomitant]
     Active Substance: LOPERAMIDE HYDROCHLORIDE
  16. TRIAMCINOLONE ACETONIDE. [Concomitant]
     Active Substance: TRIAMCINOLONE ACETONIDE
  17. HYDROCHLOROTHIAZIDE. [Concomitant]
     Active Substance: HYDROCHLOROTHIAZIDE
  18. VIVELLE-DOT [Concomitant]
     Active Substance: ESTRADIOL

REACTIONS (3)
  - White blood cell disorder [Unknown]
  - Cholelithiasis [Recovered/Resolved]
  - Hypersensitivity [Unknown]

NARRATIVE: CASE EVENT DATE: 20150315
